FAERS Safety Report 9815092 (Version 2)
Quarter: 2014Q1

REPORT INFORMATION
  Report Type: Spontaneous
  Country: SE (occurrence: SE)
  Receive Date: 20140114
  Receipt Date: 20140325
  Transmission Date: 20141002
  Serious: Yes (Hospitalization, Other)
  Sender: FDA-Public Use
  Company Number: SE-009507513-1401SWE003167

PATIENT
  Age: 66 Year
  Sex: Female

DRUGS (1)
  1. FOSAMAX VECKOTABLETT 70 MG TABLETTER [Suspect]
     Dosage: 70 MG WEEKLY TABLET
     Route: 048
     Dates: end: 20131221

REACTIONS (1)
  - Femur fracture [Not Recovered/Not Resolved]
